FAERS Safety Report 17432508 (Version 1)
Quarter: 2020Q1

REPORT INFORMATION
  Report Type: Spontaneous
  Country: FR (occurrence: FR)
  Receive Date: 20200219
  Receipt Date: 20200219
  Transmission Date: 20200409
  Serious: Yes (Hospitalization)
  Sender: FDA-Public Use
  Company Number: FR-TEVA-2020-FR-1187484

PATIENT
  Age: 87 Year
  Sex: Female

DRUGS (2)
  1. ATORVASTATINE [Suspect]
     Active Substance: ATORVASTATIN
     Indication: HYPERCHOLESTEROLAEMIA
     Route: 048
     Dates: start: 201910
  2. SPASMINE [CRATAEGUS SPP. FLOWER POWDER;VALERIANA OFFICINALIS ROOT DRY EXTRACT] [Suspect]
     Active Substance: HAWTHORN LEAF WITH FLOWER\VALERIAN
     Indication: PROPHYLAXIS
     Route: 048
     Dates: start: 201910

REACTIONS (1)
  - Hepatitis acute [Recovering/Resolving]

NARRATIVE: CASE EVENT DATE: 20200116
